FAERS Safety Report 7477857-3 (Version None)
Quarter: 2011Q2

REPORT INFORMATION
  Report Type: 
  Country: None (occurrence: None)
  Receive Date: 20110513
  Receipt Date: 20110502
  Transmission Date: 20111010
  Serious: Yes (Hospitalization, Other)
  Sender: FDA-Public Use
  Company Number: US-BAYER-201035477NA

PATIENT
  Age: 18 Year
  Sex: Female
  Weight: 140.59 kg

DRUGS (7)
  1. YAZ [Suspect]
     Indication: PRODUCT USED FOR UNKNOWN INDICATION
     Dosage: UNK
     Dates: start: 20040101, end: 20060101
  2. ALEVE-D SINUS + COLD [Concomitant]
     Dosage: UNK
     Dates: start: 20050101
  3. YASMIN [Suspect]
     Indication: PRODUCT USED FOR UNKNOWN INDICATION
     Dosage: UNK
     Dates: start: 20040101, end: 20060101
  4. GLUCOPHAGE [Concomitant]
  5. ZOCOR [Concomitant]
  6. DROSPIRENONE AND ETHINYL ESTRADIOL [Suspect]
     Indication: PRODUCT USED FOR UNKNOWN INDICATION
     Dosage: UNK
     Dates: start: 20040101, end: 20060101
  7. ADVIL LIQUI-GELS [Concomitant]
     Dosage: UNK
     Dates: start: 20050101

REACTIONS (5)
  - CHOLECYSTITIS CHRONIC [None]
  - CHOLECYSTECTOMY [None]
  - NAUSEA [None]
  - MENTAL DISORDER [None]
  - ABDOMINAL PAIN UPPER [None]
